FAERS Safety Report 14487665 (Version 1)
Quarter: 2018Q1

REPORT INFORMATION
  Report Type: Spontaneous
  Country: LT (occurrence: LT)
  Receive Date: 20180205
  Receipt Date: 20180205
  Transmission Date: 20180509
  Serious: Yes (Hospitalization)
  Sender: FDA-Public Use
  Company Number: LT-TEVA-2018-LT-852004

PATIENT
  Age: 40 Year
  Sex: Female
  Weight: 78 kg

DRUGS (1)
  1. FINLEPSIN [Suspect]
     Active Substance: CARBAMAZEPINE
     Route: 048

REACTIONS (4)
  - Asthenia [Recovered/Resolved]
  - Nausea [Recovered/Resolved]
  - Vomiting [Recovered/Resolved]
  - Abdominal pain upper [Recovered/Resolved]

NARRATIVE: CASE EVENT DATE: 20171103
